FAERS Safety Report 8906709 (Version 1)
Quarter: 2012Q4

REPORT INFORMATION
  Report Type: 
  Country: KE (occurrence: KE)
  Receive Date: 20121114
  Receipt Date: 20121114
  Transmission Date: 20130627
  Serious: Yes (Death, Other)
  Sender: FDA-Public Use
  Company Number: KE-ELI_LILLY_AND_COMPANY-KE201211003260

PATIENT
  Sex: Male

DRUGS (2)
  1. CIALIS [Suspect]
     Dosage: 20 mg, unknown
  2. CIALIS [Suspect]
     Dosage: 40 mg, unknown
     Route: 065
     Dates: start: 2009, end: 2009

REACTIONS (2)
  - Death [Fatal]
  - Overdose [Not Recovered/Not Resolved]
